FAERS Safety Report 4269673-0 (Version None)
Quarter: 2004Q1

REPORT INFORMATION
  Report Type: 
  Country: None (occurrence: None)
  Receive Date: 20040112
  Receipt Date: 20040107
  Transmission Date: 20041129
  Serious: Yes (Hospitalization)
  Sender: FDA-Public Use
  Company Number: 2003-12-1845

PATIENT
  Age: 8 Year
  Sex: Female

DRUGS (5)
  1. NASONEX [Suspect]
     Indication: SINUSITIS
     Dosage: QD NASAL SPRAY
     Dates: start: 20030101
  2. DEPAKENE [Concomitant]
  3. IMODIUM [Concomitant]
  4. KEPPRA [Concomitant]
  5. CARNICOR [Concomitant]

REACTIONS (3)
  - PNEUMONIA [None]
  - SECRETION DISCHARGE [None]
  - TRACHEOSTOMY MALFUNCTION [None]
